FAERS Safety Report 11258677 (Version 1)
Quarter: 2015Q2

REPORT INFORMATION
  Report Type: Spontaneous
  Country: US (occurrence: None)
  Receive Date: 20150617
  Receipt Date: 20150617
  Transmission Date: 20150821
  Serious: No
  Sender: FDA-Public Use
  Company Number: 2014TASUS000598

PATIENT
  Age: 53 Year
  Sex: Female
  Weight: 72.6 kg

DRUGS (8)
  1. TRICOR [Concomitant]
     Active Substance: FENOFIBRATE
  2. PANTOPRAZOLE SODIUM. [Concomitant]
     Active Substance: PANTOPRAZOLE SODIUM
  3. HETLIOZ [Suspect]
     Active Substance: TASIMELTEON
     Indication: CIRCADIAN RHYTHM SLEEP DISORDER
     Route: 048
     Dates: start: 20140916
  4. LEVOTHYROXINE SODIUM. [Concomitant]
     Active Substance: LEVOTHYROXINE SODIUM
  5. FLUTICASONE PROPIONATE. [Concomitant]
     Active Substance: FLUTICASONE PROPIONATE
  6. MECLIZINE HCL (MECLOZINE HYDROCHLORIDE) [Concomitant]
  7. DIOVAN [Concomitant]
     Active Substance: VALSARTAN
  8. JANUMET [Concomitant]
     Active Substance: METFORMIN HYDROCHLORIDE\SITAGLIPTIN PHOSPHATE

REACTIONS (2)
  - Throat irritation [None]
  - Drug ineffective [None]

NARRATIVE: CASE EVENT DATE: 201409
